FAERS Safety Report 8932687 (Version 1)
Quarter: 2012Q4

REPORT INFORMATION
  Report Type: Report from Study
  Country: JP (occurrence: JP)
  Receive Date: 20121129
  Receipt Date: 20121129
  Transmission Date: 20130627
  Serious: Yes (Other)
  Sender: FDA-Public Use
  Company Number: JP-JNJFOC-20120906859

PATIENT
  Age: 75 Year
  Sex: Female
  Weight: 50 kg

DRUGS (17)
  1. SIMPONI [Suspect]
     Indication: RHEUMATOID ARTHRITIS
     Route: 058
     Dates: start: 20120302
  2. SIMPONI [Suspect]
     Indication: RHEUMATOID ARTHRITIS
     Route: 058
     Dates: start: 20120330
  3. SIMPONI [Suspect]
     Indication: RHEUMATOID ARTHRITIS
     Route: 058
     Dates: start: 20120502
  4. SIMPONI [Suspect]
     Indication: RHEUMATOID ARTHRITIS
     Route: 058
     Dates: start: 20120627
  5. SIMPONI [Suspect]
     Indication: RHEUMATOID ARTHRITIS
     Route: 058
     Dates: start: 20120725
  6. SIMPONI [Suspect]
     Indication: RHEUMATOID ARTHRITIS
     Route: 058
     Dates: start: 20120822
  7. SIMPONI [Suspect]
     Indication: RHEUMATOID ARTHRITIS
     Route: 058
     Dates: start: 20120530
  8. TRAMACET [Suspect]
     Indication: PAIN
     Dosage: 1-3 tablets per day, prn
     Route: 048
     Dates: start: 20120203, end: 20120704
  9. PREDNISOLONE [Concomitant]
     Indication: RHEUMATOID ARTHRITIS
     Dates: start: 20110928
  10. PREDNISOLONE [Concomitant]
     Indication: RHEUMATOID ARTHRITIS
     Dates: start: 20111128, end: 20120330
  11. LYRICA [Concomitant]
     Indication: PAIN
     Route: 048
  12. NORSPAN [Concomitant]
     Indication: PAIN
     Route: 062
  13. CYTOTEC [Concomitant]
     Indication: GASTRITIS
     Route: 048
  14. FERRUM [Concomitant]
     Indication: IRON DEFICIENCY ANAEMIA
     Route: 048
  15. OMEPRAL [Concomitant]
     Indication: PROPHYLAXIS
  16. GASMOTIN [Concomitant]
     Indication: GASTRITIS
     Route: 048
  17. TERIPARATIDE ACETATE [Concomitant]
     Indication: OSTEOPOROSIS
     Route: 058

REACTIONS (1)
  - White blood cell count decreased [Recovered/Resolved]
